FAERS Safety Report 9925811 (Version 1)
Quarter: 2014Q1

REPORT INFORMATION
  Report Type: Spontaneous
  Country: GB (occurrence: GB)
  Receive Date: 20140226
  Receipt Date: 20140226
  Transmission Date: 20141002
  Serious: Yes (Hospitalization, Other)
  Sender: FDA-Public Use
  Company Number: GB-TEVA-462886ISR

PATIENT
  Age: 28 Year
  Sex: Male

DRUGS (2)
  1. OLANZAPINE [Suspect]
     Indication: SCHIZOPHRENIA
     Route: 030
  2. HALOPERIDOL [Concomitant]

REACTIONS (7)
  - Post procedural complication [Not Recovered/Not Resolved]
  - Agitation [Unknown]
  - Chest pain [Unknown]
  - Somnolence [Unknown]
  - Sedation [Unknown]
  - Tachycardia [Unknown]
  - Incorrect route of drug administration [Unknown]
